FAERS Safety Report 19328599 (Version 1)
Quarter: 2021Q2

REPORT INFORMATION
  Report Type: Spontaneous
  Country: US (occurrence: US)
  Receive Date: 20210528
  Receipt Date: 20210528
  Transmission Date: 20210717
  Serious: Yes (Other)
  Sender: FDA-Public Use
  Company Number: NVSC2021US119235

PATIENT

DRUGS (1)
  1. DIGOXIN. [Suspect]
     Active Substance: DIGOXIN
     Indication: SUPRAVENTRICULAR TACHYCARDIA
     Dosage: 50 MCG/KG IN ERROR (150 MCG)
     Route: 065

REACTIONS (3)
  - Cardioactive drug level above therapeutic [Recovering/Resolving]
  - Off label use [Unknown]
  - Incorrect dose administered [Unknown]
